FAERS Safety Report 21341829 (Version 2)
Quarter: 2022Q4

REPORT INFORMATION
  Report Type: Spontaneous
  Country: US (occurrence: US)
  Receive Date: 20220916
  Receipt Date: 20221028
  Transmission Date: 20230113
  Serious: Yes (Hospitalization)
  Sender: FDA-Public Use
  Company Number: US-BRISTOL-MYERS SQUIBB COMPANY-2022-106648

PATIENT
  Age: 89 Year
  Sex: Female

DRUGS (1)
  1. POMALYST [Suspect]
     Active Substance: POMALIDOMIDE
     Indication: Plasma cell myeloma
     Dosage: FREQUENCY: TAKE 1 CAPSULE BY WHOLE MOUTH WITH WATER, WITHOUT FOOD, AT SAME TIME DAILY FOR 21 DAYS. D
     Route: 048
     Dates: start: 20220418

REACTIONS (3)
  - Anxiety [Unknown]
  - Asthenia [Unknown]
  - Dyspnoea [Unknown]
